FAERS Safety Report 7340872-4 (Version None)
Quarter: 2011Q1

REPORT INFORMATION
  Report Type: 
  Country: None (occurrence: None)
  Receive Date: 20110309
  Receipt Date: 20110228
  Transmission Date: 20110831
  Serious: Yes (Hospitalization, Other)
  Sender: FDA-Public Use
  Company Number: US-TEVA-269313USA

PATIENT
  Age: 34 Week
  Sex: Male

DRUGS (1)
  1. CAPTOPRIL 12.5 MG, 25 MG, 50 MG + 100 MG TABLETS [Suspect]
     Dosage: 0.1 MG/KG PER 8 HOURS

REACTIONS (1)
  - RENAL FAILURE ACUTE [None]
